FAERS Safety Report 8183859-4 (Version None)
Quarter: 2012Q1

REPORT INFORMATION
  Report Type: 
  Country: None (occurrence: None)
  Receive Date: 20120305
  Receipt Date: 20120227
  Transmission Date: 20120608
  Serious: Yes (Other)
  Sender: FDA-Public Use
  Company Number: JP-SANOFI-AVENTIS-2012SA004178

PATIENT
  Sex: Female

DRUGS (5)
  1. TELMISARTAN AND HYDROCHLOROTHIAZIDE [Suspect]
     Route: 065
  2. PLAVIX [Suspect]
     Indication: CEREBRAL INFARCTION
     Route: 048
     Dates: start: 20110830
  3. ANGIOTENSIN II ANTAGONISTS [Suspect]
     Route: 065
  4. ALISKIREN [Concomitant]
  5. JANUVIA [Concomitant]

REACTIONS (1)
  - RHABDOMYOLYSIS [None]
